FAERS Safety Report 20870215 (Version 1)
Quarter: 2022Q2

REPORT INFORMATION
  Report Type: Spontaneous
  Country: AU (occurrence: AU)
  Receive Date: 20220525
  Receipt Date: 20220525
  Transmission Date: 20220721
  Serious: Yes (Hospitalization)
  Sender: FDA-Public Use
  Company Number: AU-LUPIN PHARMACEUTICALS INC.-2022-07411

PATIENT
  Age: 7 Year
  Sex: Male

DRUGS (3)
  1. RIFAMPIN [Suspect]
     Active Substance: RIFAMPIN
     Indication: Cutaneous tuberculosis
     Dosage: UNK
     Route: 065
  2. ETHAMBUTOL [Suspect]
     Active Substance: ETHAMBUTOL HYDROCHLORIDE
     Indication: Cutaneous tuberculosis
     Dosage: UNK
     Route: 065
  3. ETHIONAMIDE [Suspect]
     Active Substance: ETHIONAMIDE
     Indication: Cutaneous tuberculosis
     Dosage: UNK
     Route: 065

REACTIONS (2)
  - Paradoxical drug reaction [Recovered/Resolved]
  - Lymphadenopathy [Recovered/Resolved]
